FAERS Safety Report 17411334 (Version 8)
Quarter: 2021Q4

REPORT INFORMATION
  Report Type: Report from Study
  Country: NL (occurrence: NL)
  Receive Date: 20200212
  Receipt Date: 20211103
  Transmission Date: 20220303
  Serious: Yes (Hospitalization, Other)
  Sender: FDA-Public Use
  Company Number: NL-ABBVIE-19S-114-2711894-00

PATIENT
  Sex: Male
  Weight: 67 kg

DRUGS (6)
  1. CARBIDOPA\LEVODOPA [Suspect]
     Active Substance: CARBIDOPA\LEVODOPA
     Indication: Parkinson^s disease
     Dosage: MD 10.0 ML, CD  3.2 ML, ED 3.0 ML.
     Route: 050
     Dates: start: 20190304
  2. CARBIDOPA\LEVODOPA [Suspect]
     Active Substance: CARBIDOPA\LEVODOPA
     Dosage: MD 10.0, CD 3.0, ED 3.0
     Route: 050
  3. CARBIDOPA\LEVODOPA [Suspect]
     Active Substance: CARBIDOPA\LEVODOPA
     Dosage: CD: 2.8
     Route: 050
  4. CARBIDOPA\LEVODOPA [Suspect]
     Active Substance: CARBIDOPA\LEVODOPA
     Dosage: MD 10.0 ML, CD 2.8 ML/H, ED 3.0 ML
     Route: 050
  5. BENSERAZIDE HYDROCHLORIDE\LEVODOPA [Concomitant]
     Active Substance: BENSERAZIDE HYDROCHLORIDE\LEVODOPA
     Indication: Product used for unknown indication
     Dosage: ONCE DAILY FOR THE NIGHT
  6. POLYETHYLENE GLYCOLS [Concomitant]
     Active Substance: POLYETHYLENE GLYCOLS
     Indication: Stool analysis

REACTIONS (43)
  - Prostatic disorder [Recovered/Resolved]
  - Prostatic operation [Recovering/Resolving]
  - Catheter site haemorrhage [Recovered/Resolved]
  - Urinary retention [Recovered/Resolved]
  - Hospitalisation [Unknown]
  - Memory impairment [Recovered/Resolved]
  - Fibroma [Recovered/Resolved]
  - Balance disorder [Not Recovered/Not Resolved]
  - Device breakage [Recovered/Resolved]
  - Musculoskeletal stiffness [Not Recovered/Not Resolved]
  - Cognitive disorder [Not Recovered/Not Resolved]
  - Prostatism [Unknown]
  - Muscle rigidity [Unknown]
  - Impaired quality of life [Unknown]
  - Poor quality sleep [Recovered/Resolved]
  - Tension [Not Recovered/Not Resolved]
  - Stress [Not Recovered/Not Resolved]
  - Abnormal dreams [Recovered/Resolved]
  - Fatigue [Recovered/Resolved]
  - Weight decreased [Not Recovered/Not Resolved]
  - Fall [Not Recovered/Not Resolved]
  - Fall [Recovered/Resolved]
  - Delirium [Recovered/Resolved]
  - On and off phenomenon [Recovered/Resolved]
  - Dyskinesia [Recovering/Resolving]
  - Insomnia [Recovered/Resolved]
  - Stoma site irritation [Recovered/Resolved]
  - Anxiety [Not Recovered/Not Resolved]
  - Stoma site pain [Recovered/Resolved]
  - Stoma site erythema [Recovered/Resolved]
  - Stoma site discharge [Recovered/Resolved]
  - Hallucination [Recovered/Resolved]
  - Stoma site haemorrhage [Recovered/Resolved]
  - On and off phenomenon [Not Recovered/Not Resolved]
  - Diarrhoea [Unknown]
  - Somnolence [Not Recovered/Not Resolved]
  - Bradykinesia [Not Recovered/Not Resolved]
  - Freezing phenomenon [Not Recovered/Not Resolved]
  - Device issue [Unknown]
  - Device issue [Recovered/Resolved]
  - Asthenia [Not Recovered/Not Resolved]
  - Gait disturbance [Not Recovered/Not Resolved]
  - Loss of personal independence in daily activities [Not Recovered/Not Resolved]

NARRATIVE: CASE EVENT DATE: 20190101
